FAERS Safety Report 9508050 (Version 1)
Quarter: 2013Q1

REPORT INFORMATION
  Report Type: Spontaneous
  Country: US (occurrence: None)
  Receive Date: 20130305
  Receipt Date: 20130305
  Transmission Date: 20140127
  Serious: Yes (Disabling, Other)
  Sender: FDA-Public Use
  Company Number: 163-21880-12032876

PATIENT
  Age: 77 Year
  Sex: Male

DRUGS (2)
  1. REVLIMID (LENALIDOMIDE) (25 MILLIGRAM, CAPSULES) [Suspect]
     Indication: PLASMA CELL MYELOMA
     Dosage: 1 IN 1 D
     Route: 048
     Dates: start: 200808
  2. DEXAMETHASONE (DEXAMETHASONE) [Concomitant]

REACTIONS (6)
  - Dehydration [None]
  - Plasma cell myeloma [None]
  - Dizziness [None]
  - Neuropathy peripheral [None]
  - Malaise [None]
  - Drug ineffective [None]
